FAERS Safety Report 12679066 (Version 1)
Quarter: 2016Q3

REPORT INFORMATION
  Report Type: Spontaneous
  Country: US (occurrence: US)
  Receive Date: 20160824
  Receipt Date: 20160824
  Transmission Date: 20161109
  Serious: No
  Sender: FDA-Public Use
  Company Number: US-009507513-1608USA004995

PATIENT
  Age: 50 Year
  Sex: Female

DRUGS (19)
  1. PRINIVIL [Suspect]
     Active Substance: LISINOPRIL
     Indication: HYPERTENSION
     Dosage: 10 MG (1 TABLET) EVERY DAY
     Route: 048
     Dates: start: 20120329, end: 201601
  2. BONVIVA [Concomitant]
     Active Substance: IBANDRONATE SODIUM
     Indication: OSTEOPOROSIS
     Dosage: 150 MG (1 TABLET) ONCE MONTHLY
     Route: 048
     Dates: start: 20100709
  3. SPIRIVA [Concomitant]
     Active Substance: TIOTROPIUM BROMIDE MONOHYDRATE
     Dosage: 2 PUFFS 1X DAILY
  4. FENTANYL. [Concomitant]
     Active Substance: FENTANYL
     Dosage: 1 PATCH EVERY 72 HOURS
  5. XARELTO [Concomitant]
     Active Substance: RIVAROXABAN
     Dosage: 20 MG (1) IN AM
     Route: 048
  6. PHENERGAN [Concomitant]
     Active Substance: PROMETHAZINE HYDROCHLORIDE
     Dosage: 25 MG (1 TABLET) EVERY 4 TO 6 HOURS AS NEEDED
     Route: 048
     Dates: start: 20151020
  7. VITAMINS (UNSPECIFIED) [Concomitant]
     Active Substance: VITAMINS
     Indication: ROUTINE HEALTH MAINTENANCE
     Dosage: UNK
     Route: 048
  8. KLONOPIN [Concomitant]
     Active Substance: CLONAZEPAM
     Indication: ANXIETY DISORDER
     Dosage: 0.5 MG (1 TABLET), EVERY 8 HOURS
     Route: 048
     Dates: start: 20150225
  9. BACTRIM DS [Concomitant]
     Active Substance: SULFAMETHOXAZOLE\TRIMETHOPRIM
     Dosage: 1 DF, QD
     Route: 048
  10. PREDNISONE. [Concomitant]
     Active Substance: PREDNISONE
     Dosage: 10 MG/DAY/ 5 MG NEXT
     Route: 048
  11. PRISTIQ EXTENDED-RELEASE [Concomitant]
     Active Substance: DESVENLAFAXINE SUCCINATE
     Indication: DEPRESSION
     Dosage: 50 MG (1 TABLET) DAILY
     Route: 048
     Dates: start: 20130401
  12. PROTONIX [Concomitant]
     Active Substance: PANTOPRAZOLE SODIUM
     Indication: GASTROOESOPHAGEAL REFLUX DISEASE
     Dosage: 40 MG (1 TABLET) DAILY
     Route: 048
     Dates: start: 20130926
  13. MACRODANTIN [Concomitant]
     Active Substance: NITROFURANTOIN
     Indication: URINARY TRACT INFECTION
     Dosage: 100 MG (1 TABLET) TWICE A DAY
     Route: 048
     Dates: start: 20160113
  14. PRINIVIL [Suspect]
     Active Substance: LISINOPRIL
     Dosage: 5 MG DAILY
     Route: 048
     Dates: start: 201601
  15. MORPHINE SULFATE. [Concomitant]
     Active Substance: MORPHINE SULFATE
     Dosage: 30 MG- 1 AM/1 PM
     Route: 048
  16. PHENERGAN [Concomitant]
     Active Substance: PROMETHAZINE HYDROCHLORIDE
     Indication: NAUSEA
     Dosage: 25 MG (1 TABLET) EVERY 6 HOURS AS NEEDED
     Route: 048
     Dates: start: 20150619, end: 20151019
  17. CALCIUM (UNSPECIFIED) (+) VITAMIN D (UNSPECIFIED) [Concomitant]
     Active Substance: CALCIUM CARBONATE\VITAMIN D
     Indication: ROUTINE HEALTH MAINTENANCE
     Dosage: UNK
     Route: 048
  18. WELLBUTRIN SR [Concomitant]
     Active Substance: BUPROPION HYDROCHLORIDE
     Indication: DEPRESSION
     Dosage: 150 MG (1 TABLET) DAILY FOR 3 DAYS, THEN 1 TABLET TWICE DAILY
     Route: 048
     Dates: start: 20120629
  19. MORPHINE SULFATE. [Concomitant]
     Active Substance: MORPHINE SULFATE
     Dosage: FORMULATION: TABLET
     Route: 048

REACTIONS (1)
  - Blood potassium increased [Unknown]

NARRATIVE: CASE EVENT DATE: 201601
